FAERS Safety Report 7517201-6 (Version None)
Quarter: 2011Q2

REPORT INFORMATION
  Report Type: 
  Country: None (occurrence: None)
  Receive Date: 20110601
  Receipt Date: 20110526
  Transmission Date: 20111010
  Serious: Yes (Death, Other)
  Sender: FDA-Public Use
  Company Number: US-AMGEN-USASP2011026617

PATIENT
  Age: 73 Year
  Sex: Male
  Weight: 40.363 kg

DRUGS (7)
  1. NPLATE [Suspect]
  2. NPLATE [Suspect]
  3. NPLATE [Suspect]
  4. NPLATE [Suspect]
     Indication: IDIOPATHIC THROMBOCYTOPENIC PURPURA
     Dosage: 801 A?G, QWK
     Route: 058
     Dates: start: 20101021, end: 20101230
  5. RED BLOOD CELLS [Concomitant]
  6. NPLATE [Suspect]
  7. PLATELETS [Concomitant]

REACTIONS (2)
  - DRUG INEFFECTIVE [None]
  - DEATH [None]
